FAERS Safety Report 10946221 (Version 2)
Quarter: 2015Q3

REPORT INFORMATION
  Report Type: Spontaneous
  Country: US (occurrence: US)
  Receive Date: 20150323
  Receipt Date: 20150818
  Transmission Date: 20151125
  Serious: Yes (Death, Hospitalization, Other)
  Sender: FDA-Public Use
  Company Number: US-AMGEN-USASP2015026032

PATIENT
  Age: 85 Year
  Sex: Female
  Weight: 43.54 kg

DRUGS (1)
  1. PROLIA [Suspect]
     Active Substance: DENOSUMAB
     Indication: OSTEOPOROSIS
     Dosage: 1 ML, Q6MO
     Route: 058
     Dates: start: 20140408

REACTIONS (3)
  - Pneumonia [Unknown]
  - Presbyoesophagus [Fatal]
  - Malnutrition [Fatal]
